FAERS Safety Report 8208534-9 (Version None)
Quarter: 2012Q1

REPORT INFORMATION
  Report Type: 
  Country: None (occurrence: None)
  Receive Date: 20120314
  Receipt Date: 20120308
  Transmission Date: 20120608
  Serious: Yes (Hospitalization)
  Sender: FDA-Public Use
  Company Number: US-GLAXOSMITHKLINE-A0897741A

PATIENT
  Age: 33 Year
  Sex: Female

DRUGS (2)
  1. AVANDAMET [Suspect]
     Indication: DIABETES MELLITUS
     Route: 048
     Dates: start: 20041101, end: 20080101
  2. AVANDIA [Suspect]
     Indication: DIABETES MELLITUS
     Dosage: 8MG PER DAY
     Route: 048
     Dates: start: 20010201

REACTIONS (6)
  - CARDIAC DISORDER [None]
  - HEADACHE [None]
  - CATHETERISATION CARDIAC [None]
  - CHEST PAIN [None]
  - OEDEMA PERIPHERAL [None]
  - DIZZINESS [None]
